FAERS Safety Report 7381269-0 (Version None)
Quarter: 2011Q1

REPORT INFORMATION
  Report Type: 
  Country: None (occurrence: None)
  Receive Date: 20110329
  Receipt Date: 20110322
  Transmission Date: 20110831
  Serious: Yes (Hospitalization)
  Sender: FDA-Public Use
  Company Number: CN-ASTRAZENECA-2011SE16282

PATIENT
  Age: 61 Year
  Sex: Male

DRUGS (4)
  1. RHINOCORT [Suspect]
     Indication: RHINITIS ALLERGIC
     Route: 045
     Dates: start: 20101101
  2. PROSCAR [Concomitant]
     Indication: PROSTATITIS
  3. LONGBIZHI [Concomitant]
     Indication: PROSTATITIS
  4. PLAVIX [Concomitant]

REACTIONS (6)
  - CARDIAC DISORDER [None]
  - PALPITATIONS [None]
  - PRODUCTIVE COUGH [None]
  - CHOKING SENSATION [None]
  - HYPOAESTHESIA [None]
  - GAIT DISTURBANCE [None]
